FAERS Safety Report 5429468-9 (Version None)
Quarter: 2007Q3

REPORT INFORMATION
  Report Type: 
  Country: None (occurrence: None)
  Receive Date: 20070829
  Receipt Date: 20070823
  Transmission Date: 20080115
  Serious: Yes (Death)
  Sender: FDA-Public Use
  Company Number: A0676078A

PATIENT
  Age: 38 Year
  Sex: Female

DRUGS (3)
  1. FLONASE [Suspect]
     Route: 045
  2. TYLENOL (CAPLET) [Suspect]
  3. CONCURRENT MEDICATIONS [Concomitant]

REACTIONS (2)
  - ACCIDENTAL DEATH [None]
  - COMPLETED SUICIDE [None]
